FAERS Safety Report 6020388-8 (Version None)
Quarter: 2008Q4

REPORT INFORMATION
  Report Type: 
  Country: None (occurrence: None)
  Receive Date: 20081226
  Receipt Date: 20081217
  Transmission Date: 20090506
  Serious: Yes (Hospitalization, Other)
  Sender: FDA-Public Use
  Company Number: US-MERCK-0807USA00771

PATIENT
  Age: 57 Year
  Sex: Female
  Weight: 56 kg

DRUGS (1)
  1. FOSAMAX [Suspect]
     Indication: OSTEOPOROSIS
     Route: 048
     Dates: start: 19970801, end: 20060801

REACTIONS (31)
  - ADVERSE DRUG REACTION [None]
  - ALOPECIA [None]
  - ANXIETY [None]
  - BALANCE DISORDER [None]
  - CATARACT [None]
  - CLUMSINESS [None]
  - DEPRESSION [None]
  - DRY MOUTH [None]
  - EAR DISORDER [None]
  - FISTULA [None]
  - FLUID RETENTION [None]
  - HERPES ZOSTER [None]
  - HYPOACUSIS [None]
  - HYPOAESTHESIA [None]
  - INFECTION [None]
  - LYMPHADENOPATHY [None]
  - OROPHARYNGEAL CANCER STAGE UNSPECIFIED [None]
  - OSTEONECROSIS [None]
  - OSTEORADIONECROSIS [None]
  - PANIC ATTACK [None]
  - PARAESTHESIA [None]
  - PERIODONTAL DISEASE [None]
  - POST HERPETIC NEURALGIA [None]
  - RADIATION FIBROSIS - LUNG [None]
  - RESORPTION BONE INCREASED [None]
  - SKIN LESION [None]
  - TEMPOROMANDIBULAR JOINT SYNDROME [None]
  - TONGUE ULCERATION [None]
  - TOOTH ABSCESS [None]
  - TOOTH FRACTURE [None]
  - TOOTH INFECTION [None]
